FAERS Safety Report 7507513-4 (Version None)
Quarter: 2011Q2

REPORT INFORMATION
  Report Type: 
  Country: None (occurrence: None)
  Receive Date: 20110526
  Receipt Date: 20100723
  Transmission Date: 20111010
  Serious: No
  Sender: FDA-Public Use
  Company Number: US-MYLANLABS-2010S1013542

PATIENT
  Age: 66 Year
  Sex: Male
  Weight: 96.16 kg

DRUGS (2)
  1. ZOLPIDEM TARTRATE [Suspect]
     Indication: INSOMNIA
     Dosage: PRN
     Route: 048
     Dates: start: 20100701
  2. ENALAPRIL MALEATE [Concomitant]

REACTIONS (2)
  - INSOMNIA [None]
  - DRUG EFFECT DECREASED [None]
